FAERS Safety Report 23700077 (Version 1)
Quarter: 2024Q2

REPORT INFORMATION
  Report Type: Spontaneous
  Country: CN (occurrence: CN)
  Receive Date: 20240403
  Receipt Date: 20240403
  Transmission Date: 20240715
  Serious: Yes (Other)
  Sender: FDA-Public Use
  Company Number: CN-BEIGENE-BGN-2024-004741

PATIENT

DRUGS (3)
  1. TISLELIZUMAB [Suspect]
     Active Substance: TISLELIZUMAB
     Indication: Lung neoplasm malignant
     Dosage: 200 MILLIGRAM
     Route: 041
     Dates: start: 20240229
  2. CISPLATIN [Suspect]
     Active Substance: CISPLATIN
     Indication: Lung neoplasm malignant
     Dosage: 35 MILLIGRAM D1-D3
     Route: 041
     Dates: start: 20240229
  3. PACLITAXEL [Suspect]
     Active Substance: PACLITAXEL
     Indication: Lung neoplasm malignant
     Dosage: 180 MILLIGRAM
     Route: 041
     Dates: start: 20240229

REACTIONS (2)
  - Neutrophil count decreased [Recovered/Resolved]
  - White blood cell count decreased [Recovered/Resolved]

NARRATIVE: CASE EVENT DATE: 20240308
